FAERS Safety Report 9068621 (Version 1)
Quarter: 2013Q1

REPORT INFORMATION
  Report Type: Spontaneous
  Country: US (occurrence: None)
  Receive Date: 20130212
  Receipt Date: 20130212
  Transmission Date: 20140127
  Serious: Yes (Other)
  Sender: FDA-Public Use
  Company Number: None

PATIENT
  Age: 47 Year
  Sex: Male
  Weight: 112.04 kg

DRUGS (2)
  1. DIVALPROEX SODIUM [Suspect]
     Indication: BIPOLAR DISORDER
     Dosage: 250 MG B.I.D. PO
     Route: 048
     Dates: start: 20121001, end: 20130207
  2. SERTRALINE [Suspect]
     Indication: DEPRESSION
     Dosage: 100 MG  1 X AT NIGHT  PO
     Route: 048
     Dates: start: 20111202, end: 20130207

REACTIONS (5)
  - Weight increased [None]
  - Blood triglycerides increased [None]
  - Platelet count decreased [None]
  - Tremor [None]
  - Diarrhoea [None]
